FAERS Safety Report 20551230 (Version 2)
Quarter: 2022Q1

REPORT INFORMATION
  Report Type: Spontaneous
  Country: LV (occurrence: LV)
  Receive Date: 20220304
  Receipt Date: 20220309
  Transmission Date: 20220423
  Serious: Yes (Hospitalization, Other)
  Sender: FDA-Public Use
  Company Number: LV-BoehringerIngelheim-2022-BI-156112

PATIENT
  Sex: Male
  Weight: 128 kg

DRUGS (4)
  1. EMPAGLIFLOZIN\METFORMIN HYDROCHLORIDE [Suspect]
     Active Substance: EMPAGLIFLOZIN\METFORMIN HYDROCHLORIDE
     Indication: Type 2 diabetes mellitus
     Dosage: METFORMINI12,5/1000 MG X 2
     Route: 048
  2. EMPAGLIFLOZIN\METFORMIN HYDROCHLORIDE [Suspect]
     Active Substance: EMPAGLIFLOZIN\METFORMIN HYDROCHLORIDE
     Dosage: METFORMINI12,5/1000 MG X 1
     Route: 048
  3. Rosuvastatini/ezetemibi [Concomitant]
     Indication: Product used for unknown indication
     Dosage: 20/10 MGX1
  4. D3 VITAMIN [Concomitant]
     Indication: Product used for unknown indication
     Dosage: 8000 UDX1

REACTIONS (1)
  - Diabetic ketoacidosis [Recovered/Resolved]
